FAERS Safety Report 23768686 (Version 1)
Quarter: 2024Q2

REPORT INFORMATION
  Report Type: Spontaneous
  Country: US (occurrence: US)
  Receive Date: 20240422
  Receipt Date: 20240422
  Transmission Date: 20240715
  Serious: Yes (Life-Threatening, Hospitalization, Other)
  Sender: FDA-Public Use
  Company Number: US-BAYER-2024A058994

PATIENT
  Age: 68 Year
  Sex: Male
  Weight: 57 kg

DRUGS (10)
  1. ASPIRIN [Suspect]
     Active Substance: ASPIRIN
     Indication: General physical condition
     Dosage: UNK
     Route: 065
     Dates: start: 20220906
  2. CLOPIDOGREL [Suspect]
     Active Substance: CLOPIDOGREL BISULFATE
     Indication: Cerebrovascular accident
     Dosage: UNK
     Route: 065
     Dates: start: 20230426
  3. RIVAROXABAN [Suspect]
     Active Substance: RIVAROXABAN
     Indication: Cardiovascular event prophylaxis
     Dosage: 2.5 MG
     Route: 065
     Dates: start: 20220806
  4. RIVAROXABAN [Suspect]
     Active Substance: RIVAROXABAN
     Indication: Peripheral arterial occlusive disease
  5. RIVAROXABAN [Suspect]
     Active Substance: RIVAROXABAN
     Indication: Intermittent claudication
  6. AMLODIPINE [Concomitant]
     Active Substance: AMLODIPINE BESYLATE
     Dosage: UNK
     Dates: start: 20220906
  7. ATORVASTATIN [Concomitant]
     Active Substance: ATORVASTATIN
     Dosage: UNK
     Dates: start: 20220906, end: 20230508
  8. INSULIN LISPRO [Concomitant]
     Active Substance: INSULIN LISPRO
     Dosage: UNK
     Dates: start: 20230426, end: 20230526
  9. IOPAMIDOL [Concomitant]
     Active Substance: IOPAMIDOL
     Dosage: UNK
     Dates: start: 20230426, end: 20230426
  10. MAGNESIUM SULFATE [Concomitant]
     Active Substance: MAGNESIUM SULFATE\MAGNESIUM SULFATE HEPTAHYDRATE
     Dosage: UNK
     Dates: start: 20230427, end: 20230427

REACTIONS (2)
  - Post procedural haemorrhage [Recovered/Resolved]
  - Product use in unapproved indication [None]

NARRATIVE: CASE EVENT DATE: 20230508
